FAERS Safety Report 4888827-3 (Version None)
Quarter: 2006Q1

REPORT INFORMATION
  Report Type: 
  Country: None (occurrence: None)
  Receive Date: 20060123
  Receipt Date: 20050419
  Transmission Date: 20060701
  Serious: Yes (Hospitalization, Disabling, Other)
  Sender: FDA-Public Use
  Company Number: US-MERCK-0504USA03788

PATIENT
  Age: 50 Year
  Sex: Male
  Weight: 97 kg

DRUGS (2)
  1. VIOXX [Suspect]
     Indication: ARTHRITIS
     Route: 048
     Dates: start: 19990101, end: 20040901
  2. VIOXX [Suspect]
     Indication: FIBROMYALGIA
     Route: 048
     Dates: start: 19990101, end: 20040901

REACTIONS (7)
  - ACUTE MYOCARDIAL INFARCTION [None]
  - BLOOD GLUCOSE INCREASED [None]
  - CEREBROVASCULAR ACCIDENT [None]
  - CORONARY ARTERIAL STENT INSERTION [None]
  - DEPRESSION [None]
  - INJURY [None]
  - SKIN LACERATION [None]
